APPROVED DRUG PRODUCT: ONYDA XR
Active Ingredient: CLONIDINE HYDROCHLORIDE
Strength: 0.1MG/ML
Dosage Form/Route: SUSPENSION, EXTENDED RELEASE;ORAL
Application: N217645 | Product #001
Applicant: TRIS PHARMA INC
Approved: May 24, 2024 | RLD: Yes | RS: Yes | Type: RX

PATENTS:
Patent 11918689 | Expires: Jul 28, 2041
Patent 8062667 | Expires: Mar 29, 2029